FAERS Safety Report 24571399 (Version 3)
Quarter: 2024Q4

REPORT INFORMATION
  Report Type: Spontaneous
  Country: RO (occurrence: RO)
  Receive Date: 20241101
  Receipt Date: 20241121
  Transmission Date: 20250114
  Serious: No
  Sender: ORGANON
  Company Number: RO-SA-2024SA247793

PATIENT
  Age: 71 Year
  Sex: Female

DRUGS (1)
  1. BETAMETHASONE DIPROPIONATE\BETAMETHASONE SODIUM PHOSPHATE [Suspect]
     Active Substance: BETAMETHASONE DIPROPIONATE\BETAMETHASONE SODIUM PHOSPHATE
     Indication: Osteoarthritis
     Dosage: 3.5 MG
     Route: 014

REACTIONS (1)
  - Drug ineffective [Unknown]
